FAERS Safety Report 18534344 (Version 4)
Quarter: 2021Q4

REPORT INFORMATION
  Report Type: Spontaneous
  Country: PL (occurrence: PL)
  Receive Date: 20201123
  Receipt Date: 20211021
  Transmission Date: 20220304
  Serious: Yes (Other)
  Sender: FDA-Public Use
  Company Number: PL-ROCHE-2713908

PATIENT
  Age: 23 Year
  Sex: Male

DRUGS (2)
  1. HEMLIBRA [Suspect]
     Active Substance: EMICIZUMAB-KXWH
     Indication: Factor VIII deficiency
     Dosage: 3 MG/KG B.W. ARM LEFT (165 MG= 1.1 ML)
     Route: 058
     Dates: start: 20160928
  2. HEMLIBRA [Suspect]
     Active Substance: EMICIZUMAB-KXWH
     Dosage: 1.5 MG/KG (0.55 ML)
     Route: 058

REACTIONS (3)
  - Muscle haemorrhage [Recovered/Resolved]
  - Haemarthrosis [Unknown]
  - Post procedural haemorrhage [Unknown]

NARRATIVE: CASE EVENT DATE: 20170831
